FAERS Safety Report 7211192-3 (Version None)
Quarter: 2011Q1

REPORT INFORMATION
  Report Type: 
  Country: None (occurrence: None)
  Receive Date: 20110105
  Receipt Date: 20101221
  Transmission Date: 20110831
  Serious: Yes (Hospitalization)
  Sender: FDA-Public Use
  Company Number: US-MERCK-1012USA03392

PATIENT
  Age: 64 Year
  Sex: Female

DRUGS (15)
  1. CYANOCOBALAMIN [Concomitant]
     Route: 065
  2. LEVOTHYROXINE SODIUM [Concomitant]
     Route: 065
  3. CALCIUM (UNSPECIFIED) AND VITAMIN D (UNSPECIFIED) [Concomitant]
     Route: 065
  4. PLAQUENIL [Concomitant]
     Route: 065
  5. DIAZIDE [Concomitant]
     Route: 065
  6. ASPIRIN [Concomitant]
     Route: 065
  7. FOSAMAX [Suspect]
     Route: 048
  8. VITA C [Concomitant]
     Route: 065
  9. RESTASIS [Concomitant]
     Route: 065
  10. CYMBALTA [Concomitant]
     Route: 065
  11. VITAMINS (UNSPECIFIED) [Concomitant]
     Route: 065
  12. TRAMADOL HYDROCHLORIDE [Concomitant]
     Route: 065
  13. FORTEO [Suspect]
     Indication: OSTEOPOROSIS
     Route: 065
  14. BONIVA [Suspect]
     Route: 065
     Dates: start: 20080101
  15. MELATONIN [Concomitant]
     Route: 065

REACTIONS (9)
  - PAIN IN EXTREMITY [None]
  - BONE DENSITY DECREASED [None]
  - HYPOTHYROIDISM [None]
  - RHEUMATOID ARTHRITIS [None]
  - DEPRESSION [None]
  - STRESS FRACTURE [None]
  - FALL [None]
  - FEMUR FRACTURE [None]
  - OSTEOPOROSIS [None]
